FAERS Safety Report 8338462-X (Version None)
Quarter: 2012Q2

REPORT INFORMATION
  Report Type: 
  Country: None (occurrence: None)
  Receive Date: 20120504
  Receipt Date: 20120423
  Transmission Date: 20120825
  Serious: Yes (Hospitalization, Other)
  Sender: FDA-Public Use
  Company Number: JP-PFIZER INC-2012031755

PATIENT
  Age: 33 Year
  Sex: Female
  Weight: 72 kg

DRUGS (4)
  1. CELEBREX [Suspect]
     Indication: OSTEOARTHRITIS
     Dosage: 200 MG, 2X/DAY
     Route: 048
     Dates: start: 20111219, end: 20111219
  2. VOLTAREN [Suspect]
     Indication: OSTEOARTHRITIS
     Dosage: 50 MG, 1X/DAY
     Route: 054
     Dates: start: 20111215, end: 20111219
  3. VOLTAREN [Suspect]
     Indication: ARTHRALGIA
  4. CELEBREX [Suspect]
     Indication: ARTHRALGIA

REACTIONS (3)
  - MENINGITIS ASEPTIC [None]
  - PLEURISY [None]
  - HEPATIC FUNCTION ABNORMAL [None]
